FAERS Safety Report 7315659-9 (Version None)
Quarter: 2011Q1

REPORT INFORMATION
  Report Type: 
  Country: None (occurrence: None)
  Receive Date: 20110225
  Receipt Date: 20110223
  Transmission Date: 20110831
  Serious: Yes (Death, Life-Threatening, Hospitalization, Other)
  Sender: FDA-Public Use
  Company Number: DE-SANOFI-AVENTIS-2011SA003796

PATIENT
  Age: 67 Year
  Sex: Male
  Weight: 83 kg

DRUGS (17)
  1. NEUPOGEN [Concomitant]
     Dates: start: 20110117
  2. FUROSEMID [Concomitant]
  3. CISPLATIN [Suspect]
     Indication: HYPOPHARYNGEAL CANCER
     Route: 041
     Dates: start: 20110111, end: 20110111
  4. DEXAMETHASONE [Concomitant]
     Indication: PREMEDICATION
     Dates: start: 20110111
  5. DIMETINDENE [Concomitant]
     Indication: PREMEDICATION
     Dates: start: 20110111
  6. AMPICILLIN [Concomitant]
     Dates: start: 20110117, end: 20110118
  7. OSMOFUNDIN [Concomitant]
  8. TAVANIC [Concomitant]
     Dates: start: 20110111, end: 20110119
  9. FILGRASTIM [Concomitant]
     Dosage: DOSE:30 MEGAUNIT(S)
     Dates: start: 20110117
  10. ONDANSETRON [Concomitant]
     Indication: ANTIEMETIC SUPPORTIVE CARE
  11. PANTOZOL [Concomitant]
     Dates: start: 20110117
  12. DEXAMETHASONE [Concomitant]
  13. RANITIDINE [Concomitant]
     Indication: PREMEDICATION
     Dates: start: 20110111
  14. DOCETAXEL [Suspect]
     Indication: HYPOPHARYNGEAL CANCER
     Route: 041
     Dates: start: 20110111, end: 20110111
  15. CIPROFLOXACIN HCL [Concomitant]
     Dates: start: 20110117, end: 20110118
  16. METOCLOPRAMIDE HCL [Concomitant]
     Indication: ANTIEMETIC SUPPORTIVE CARE
  17. STEROFUNDIN [Concomitant]

REACTIONS (5)
  - DIARRHOEA [None]
  - RESPIRATORY FAILURE [None]
  - MULTI-ORGAN FAILURE [None]
  - SEPSIS [None]
  - LEUKOPENIA [None]
